FAERS Safety Report 24992364 (Version 3)
Quarter: 2025Q1

REPORT INFORMATION
  Report Type: Report from Study
  Country: US (occurrence: US)
  Receive Date: 20250220
  Receipt Date: 20250331
  Transmission Date: 20250409
  Serious: Yes (Other)
  Sender: ABBVIE
  Company Number: US-ABBVIE-6137616

PATIENT
  Sex: Female

DRUGS (3)
  1. HUMIRA [Suspect]
     Active Substance: ADALIMUMAB
     Indication: Rheumatoid arthritis
     Route: 058
  2. METHOTREXATE [Concomitant]
     Active Substance: METHOTREXATE
     Indication: Product used for unknown indication
  3. ENBREL [Concomitant]
     Active Substance: ETANERCEPT
     Indication: Product used for unknown indication

REACTIONS (13)
  - Shock [Unknown]
  - Musculoskeletal disorder [Unknown]
  - Anxiety [Unknown]
  - Rib fracture [Unknown]
  - Pneumonia [Unknown]
  - Gait inability [Unknown]
  - Respiratory disorder [Unknown]
  - Fatigue [Unknown]
  - Speech disorder [Unknown]
  - Swelling [Unknown]
  - Hypersensitivity [Unknown]
  - Rheumatoid arthritis [Unknown]
  - Dysstasia [Unknown]
